FAERS Safety Report 14106190 (Version 1)
Quarter: 2017Q4

REPORT INFORMATION
  Report Type: Report from Study
  Country: US (occurrence: US)
  Receive Date: 20171019
  Receipt Date: 20171019
  Transmission Date: 20180321
  Serious: No
  Sender: FDA-Public Use
  Company Number: PHEH2017US033218

PATIENT
  Sex: Female

DRUGS (1)
  1. COSENTYX [Suspect]
     Active Substance: SECUKINUMAB
     Indication: ARTHRITIS
     Dosage: 300 MG, QMO
     Route: 065

REACTIONS (5)
  - Soft tissue injury [Unknown]
  - Product use in unapproved indication [Unknown]
  - Arthritis [Unknown]
  - Skin mass [Unknown]
  - Drug ineffective for unapproved indication [Unknown]
